FAERS Safety Report 8523198-2 (Version None)
Quarter: 2012Q3

REPORT INFORMATION
  Report Type: 
  Country: None (occurrence: None)
  Receive Date: 20120713
  Receipt Date: 20120713
  Transmission Date: 20120928
  Serious: Yes (Other)
  Sender: FDA-Public Use
  Company Number: None

PATIENT
  Age: 32 Year
  Sex: Female
  Weight: 63.5036 kg

DRUGS (1)
  1. VIIBRYD [Suspect]
     Indication: DEPRESSION
     Dosage: 40MG ONCE DAILY PO
     Route: 048
     Dates: start: 20120612, end: 20120706

REACTIONS (9)
  - SUICIDAL IDEATION [None]
  - HYPERVENTILATION [None]
  - SCREAMING [None]
  - GASTRIC DISORDER [None]
  - SLEEP TERROR [None]
  - HALLUCINATION [None]
  - CRYING [None]
  - DRUG EFFECT DECREASED [None]
  - DEPRESSION [None]
